FAERS Safety Report 16874055 (Version 1)
Quarter: 2019Q4

REPORT INFORMATION
  Report Type: Spontaneous
  Country: US (occurrence: US)
  Receive Date: 20191001
  Receipt Date: 20191001
  Transmission Date: 20200122
  Serious: No
  Sender: FDA-Public Use
  Company Number: US-BAYER-2019-177574

PATIENT
  Age: 80 Year
  Sex: Female
  Weight: 88.89 kg

DRUGS (4)
  1. AFRIN [OXYMETAZOLINE] [Concomitant]
     Dosage: UNK
     Route: 045
  2. OXYGEN. [Concomitant]
     Active Substance: OXYGEN
     Dosage: UNK UNK, CONT
  3. ADEMPAS [Suspect]
     Active Substance: RIOCIGUAT
     Dosage: 2.5 MG, UNK
  4. REMODULIN [Suspect]
     Active Substance: TREPROSTINIL
     Indication: PULMONARY ARTERIAL HYPERTENSION
     Dosage: UNK UNK, CONT
     Route: 058
     Dates: start: 20161123

REACTIONS (1)
  - Epistaxis [Unknown]
